FAERS Safety Report 24359153 (Version 1)
Quarter: 2024Q3

REPORT INFORMATION
  Report Type: Spontaneous
  Country: US (occurrence: US)
  Receive Date: 20240924
  Receipt Date: 20240924
  Transmission Date: 20241016
  Serious: Yes (Hospitalization, Other)
  Sender: Unknown Manufacturer
  Company Number: US-BLUEPRINT MEDICINES CORPORATION-2024BUS000056

PATIENT

DRUGS (6)
  1. PRALSETINIB [Suspect]
     Active Substance: PRALSETINIB
     Indication: Malignant mediastinal neoplasm
     Dosage: 100 MILLIGRAM
     Route: 065
  2. PRALSETINIB [Suspect]
     Active Substance: PRALSETINIB
     Dosage: 200 MILLIGRAM
     Route: 065
  3. PRALSETINIB [Suspect]
     Active Substance: PRALSETINIB
     Dosage: 400 MILLIGRAM
     Route: 065
  4. PRALSETINIB [Suspect]
     Active Substance: PRALSETINIB
     Dosage: UNK
     Route: 065
     Dates: end: 202301
  5. PRALSETINIB [Suspect]
     Active Substance: PRALSETINIB
     Dosage: 200 MILLIGRAM, QD
     Route: 065
  6. TEMOZOLOMIDE [Concomitant]
     Active Substance: TEMOZOLOMIDE
     Indication: Glioblastoma multiforme
     Dosage: UNK
     Route: 065

REACTIONS (1)
  - Pneumonitis [Unknown]

NARRATIVE: CASE EVENT DATE: 20230801
